FAERS Safety Report 5895548-7 (Version None)
Quarter: 2008Q3

REPORT INFORMATION
  Report Type: 
  Country: None (occurrence: None)
  Receive Date: 20080924
  Receipt Date: 20080211
  Transmission Date: 20090109
  Serious: Yes (Other)
  Sender: FDA-Public Use
  Company Number: US-ASTRAZENECA-2006UW07717

PATIENT
  Age: 50 Year
  Sex: Female
  Weight: 116.1 kg

DRUGS (17)
  1. SEROQUEL [Suspect]
     Indication: SCHIZOPHRENIA
     Dosage: 100MG-300MG
     Route: 048
     Dates: start: 20000101, end: 20070919
  2. SEROQUEL [Suspect]
     Indication: BIPOLAR DISORDER
     Dosage: 100MG-300MG
     Route: 048
     Dates: start: 20000101, end: 20070919
  3. SEROQUEL [Suspect]
     Indication: DEPRESSION
     Dosage: 100MG-300MG
     Route: 048
     Dates: start: 20000101, end: 20070919
  4. ABILIFY [Concomitant]
     Dosage: 10 MG - 30 MG
     Dates: start: 20030226, end: 20060318
  5. ABILIFY [Concomitant]
     Dates: start: 20040101
  6. STELAZINE [Concomitant]
     Dates: start: 19951228, end: 20010303
  7. ZYPREXA/SYMBYAX (OLANZAPINE) [Concomitant]
     Dates: start: 19970727, end: 19980206
  8. RISPERDAL [Concomitant]
     Dates: start: 20041018
  9. ZOLOFT [Concomitant]
     Dates: start: 19970301, end: 19970701
  10. CONAZEPAM [Concomitant]
     Dates: start: 19970701, end: 20070601
  11. LORAZEPAM [Concomitant]
     Dates: start: 19970301, end: 19990901
  12. PAXIL [Concomitant]
     Dates: start: 19991001, end: 20010201
  13. TRAZODONE HCL [Concomitant]
     Dates: start: 19991001
  14. DEPAKOTE [Concomitant]
     Dates: start: 19991001
  15. CELEXA [Concomitant]
     Dates: start: 20020501, end: 20030701
  16. LITHIUM CARBONATE [Concomitant]
     Dates: start: 20040401
  17. WELLBUTRIN XL [Concomitant]
     Dates: start: 20040601

REACTIONS (5)
  - CHEST PAIN [None]
  - GALLBLADDER DISORDER [None]
  - HYPERGLYCAEMIA [None]
  - HYPERTENSION [None]
  - SUICIDAL BEHAVIOUR [None]
